FAERS Safety Report 8915224 (Version 2)
Quarter: 2013Q1

REPORT INFORMATION
  Report Type: Spontaneous
  Country: BR (occurrence: BR)
  Receive Date: 20121116
  Receipt Date: 20130322
  Transmission Date: 20140127
  Serious: Yes (Other)
  Sender: FDA-Public Use
  Company Number: BR-ABBOTT-12P-020-1005726-00

PATIENT
  Sex: Female
  Weight: 60 kg

DRUGS (5)
  1. SYNTHROID [Suspect]
     Indication: THYROID FUNCTION TEST ABNORMAL
     Route: 048
  2. SYNTHROID [Suspect]
     Dosage: IN THE MORNING
     Route: 048
     Dates: end: 2012
  3. SYNTHROID [Suspect]
     Dosage: IN THE MORNING
     Route: 048
     Dates: start: 2012
  4. SYNTHROID [Suspect]
     Dosage: IN THE MORNING
     Route: 048
     Dates: start: 201303
  5. LEVOTHYROXINE SODIUM [Suspect]
     Indication: PRODUCT USED FOR UNKNOWN INDICATION
     Dates: start: 2012, end: 2012

REACTIONS (20)
  - Ovarian cancer [Recovered/Resolved]
  - Thyroid disorder [Unknown]
  - Blood cholesterol abnormal [Recovering/Resolving]
  - Hypertension [Recovering/Resolving]
  - Ear discomfort [Recovering/Resolving]
  - Sinusitis [Not Recovered/Not Resolved]
  - Throat irritation [Not Recovered/Not Resolved]
  - Pharyngeal disorder [Not Recovered/Not Resolved]
  - Malaise [Recovered/Resolved]
  - Headache [Recovered/Resolved]
  - Disturbance in attention [Unknown]
  - Confusional state [Unknown]
  - Pain in extremity [Unknown]
  - Fatigue [Unknown]
  - Diverticulitis [Unknown]
  - Abdominal pain [Unknown]
  - Breast mass [Unknown]
  - Diverticulitis [Unknown]
  - Gastritis [Unknown]
  - Drug ineffective [Unknown]
